FAERS Safety Report 7344588-X (Version None)
Quarter: 2011Q1

REPORT INFORMATION
  Report Type: 
  Country: None (occurrence: None)
  Receive Date: 20110306
  Receipt Date: 20110306
  Transmission Date: 20110831
  Serious: Yes (Hospitalization)
  Sender: FDA-Public Use
  Company Number: None

PATIENT
  Age: 47 Year
  Sex: Female
  Weight: 90.7194 kg

DRUGS (5)
  1. CYTOMEL [Concomitant]
  2. C1 ESTERACE INHIBITOR [Concomitant]
  3. CARDIZEM LA [Suspect]
     Indication: DYSPNOEA
     Dosage: @ LEAST ONCE DAILY PO
     Route: 048
     Dates: start: 20100601, end: 20100927
  4. CARDIZEM LA [Suspect]
     Indication: ANGINA PECTORIS
     Dosage: @ LEAST ONCE DAILY PO
     Route: 048
     Dates: start: 20100601, end: 20100927
  5. SYNTHROID [Concomitant]

REACTIONS (4)
  - THYROXINE [None]
  - POTENTIATING DRUG INTERACTION [None]
  - ANGIOEDEMA [None]
  - HYPOTHYROIDISM [None]
